FAERS Safety Report 8008663-9 (Version None)
Quarter: 2011Q4

REPORT INFORMATION
  Report Type: 
  Country: None (occurrence: None)
  Receive Date: 20111221
  Receipt Date: 20111212
  Transmission Date: 20120403
  Serious: Yes (Hospitalization)
  Sender: FDA-Public Use
  Company Number: ABR_00309_2011

PATIENT
  Sex: Female

DRUGS (2)
  1. ERYTHROMYCIN [Suspect]
     Indication: MASTITIS
     Dosage: 1 IN 1 D, ORAL
     Route: 048
     Dates: start: 20110916, end: 20110923
  2. OFLOXACIN [Concomitant]

REACTIONS (2)
  - HEPATITIS CHOLESTATIC [None]
  - CYTOLYTIC HEPATITIS [None]
